FAERS Safety Report 25218182 (Version 2)
Quarter: 2025Q2

REPORT INFORMATION
  Report Type: Report from Study
  Country: US (occurrence: US)
  Receive Date: 20250421
  Receipt Date: 20250528
  Transmission Date: 20250716
  Serious: No
  Sender: SANDOZ
  Company Number: US-SANDOZ-SDZ2025US024396

PATIENT
  Age: 14 Year
  Sex: Male

DRUGS (2)
  1. OMNITROPE [Suspect]
     Active Substance: SOMATROPIN
     Indication: Hypopituitarism
     Dosage: 2.5 MG, QD, 10 MG / 1.5 ML SOLUTION FOR INJECTION
     Route: 058
     Dates: start: 20250416
  2. OMNITROPE [Suspect]
     Active Substance: SOMATROPIN
     Indication: Hypopituitarism
     Dosage: 2.5 MG, QD, 10 MG / 1.5 ML SOLUTION FOR INJECTION
     Route: 058
     Dates: start: 20250416

REACTIONS (2)
  - Injection site pain [Recovered/Resolved]
  - Product dose omission issue [Unknown]

NARRATIVE: CASE EVENT DATE: 20250416
